FAERS Safety Report 24693780 (Version 1)
Quarter: 2024Q4

REPORT INFORMATION
  Report Type: Spontaneous
  Country: US (occurrence: US)
  Receive Date: 20241204
  Receipt Date: 20241204
  Transmission Date: 20250115
  Serious: Yes (Hospitalization, Other)
  Sender: Steriscience PTE
  Company Number: None

PATIENT
  Age: 49 Year
  Sex: Male

DRUGS (10)
  1. AMPICILLIN AND SULBACTAM [Suspect]
     Active Substance: AMPICILLIN SODIUM\SULBACTAM SODIUM
     Indication: Disseminated tuberculosis
     Dosage: 3 GRAM, TID, HIGH-DOSE
     Route: 042
  2. AMPICILLIN AND SULBACTAM [Suspect]
     Active Substance: AMPICILLIN SODIUM\SULBACTAM SODIUM
     Indication: Tuberculosis
  3. MEROPENEM [Suspect]
     Active Substance: MEROPENEM
     Indication: Disseminated tuberculosis
     Dosage: 2 GRAM, TID
     Route: 065
  4. MEROPENEM [Suspect]
     Active Substance: MEROPENEM
     Indication: Tuberculosis
  5. LINEZOLID [Concomitant]
     Active Substance: LINEZOLID
     Indication: Disseminated tuberculosis
     Dosage: UNK
     Route: 042
  6. LINEZOLID [Concomitant]
     Active Substance: LINEZOLID
     Indication: Tuberculosis
  7. MOXIFLOXACIN [Concomitant]
     Active Substance: MOXIFLOXACIN
     Indication: Disseminated tuberculosis
     Dosage: UNK
     Route: 042
  8. MOXIFLOXACIN [Concomitant]
     Active Substance: MOXIFLOXACIN
     Indication: Tuberculosis
  9. BEDAQUILINE [Concomitant]
     Active Substance: BEDAQUILINE
     Indication: Disseminated tuberculosis
     Dosage: UNK
     Route: 065
  10. BEDAQUILINE [Concomitant]
     Active Substance: BEDAQUILINE
     Indication: Tuberculosis

REACTIONS (3)
  - Potassium wasting nephropathy [None]
  - Hypophosphataemia [Unknown]
  - Hypokalaemia [None]
